FAERS Safety Report 7241221-2 (Version None)
Quarter: 2011Q1

REPORT INFORMATION
  Report Type: 
  Country: None (occurrence: None)
  Receive Date: 20110124
  Receipt Date: 20110117
  Transmission Date: 20110831
  Serious: Yes (Hospitalization)
  Sender: FDA-Public Use
  Company Number: A0773169A

PATIENT
  Age: 58 Year
  Sex: Male
  Weight: 104.1 kg

DRUGS (8)
  1. STARLIX [Concomitant]
  2. ALTACE [Concomitant]
  3. GLUCOTROL [Concomitant]
  4. AVANDIA [Suspect]
     Indication: DIABETES MELLITUS
     Dosage: 4MG PER DAY
     Route: 048
     Dates: start: 20060420, end: 20070801
  5. IBUPROFEN [Concomitant]
  6. AMARYL [Concomitant]
  7. AVANDARYL [Suspect]
     Indication: DIABETES MELLITUS
     Route: 048
     Dates: start: 20060306, end: 20060420
  8. ZOLOFT [Concomitant]

REACTIONS (2)
  - ARTERIOSCLEROSIS CORONARY ARTERY [None]
  - ACUTE CORONARY SYNDROME [None]
